FAERS Safety Report 9229072 (Version 1)
Quarter: 2013Q2

REPORT INFORMATION
  Report Type: Spontaneous
  Country: BR (occurrence: BR)
  Receive Date: 20130412
  Receipt Date: 20130412
  Transmission Date: 20140414
  Serious: Yes (Death, Hospitalization, Other)
  Sender: FDA-Public Use
  Company Number: BR-PFIZER INC-2013112701

PATIENT
  Age: 81 Year
  Sex: Female

DRUGS (2)
  1. XALATAN [Suspect]
     Indication: GLAUCOMA
     Dosage: 1 DROP EACH EYE, 1X/DAY
     Route: 047
     Dates: start: 20070204
  2. GINKGO BILOBA [Concomitant]

REACTIONS (6)
  - Infarction [Fatal]
  - Cerebrovascular accident [Unknown]
  - Pneumonia [Unknown]
  - Emphysema [Unknown]
  - Malaise [Unknown]
  - Abasia [Unknown]
